FAERS Safety Report 25272840 (Version 5)
Quarter: 2025Q4

REPORT INFORMATION
  Report Type: Report from Study
  Country: US (occurrence: US)
  Receive Date: 20250506
  Receipt Date: 20251209
  Transmission Date: 20260118
  Serious: Yes (Other)
  Sender: AZURITY PHARMACEUTICALS
  Company Number: US-AZURITY PHARMACEUTICALS, INC.-AZR202503-000844

PATIENT
  Age: 10 Year
  Sex: Male

DRUGS (3)
  1. TRIPTODUR [Suspect]
     Active Substance: TRIPTORELIN
     Indication: Precocious puberty
     Dosage: FIRST DOSE
     Route: 030
     Dates: start: 20240930
  2. TRIPTODUR [Suspect]
     Active Substance: TRIPTORELIN
     Dosage: MAINTENANCE DOSE
     Route: 030
     Dates: start: 20250502
  3. TRIPTODUR [Suspect]
     Active Substance: TRIPTORELIN
     Dosage: MAINTENANCE DOSE
     Route: 030
     Dates: start: 20250919

REACTIONS (16)
  - Hallucination [Unknown]
  - Nasal congestion [Unknown]
  - Myalgia [Unknown]
  - Bone pain [Unknown]
  - Oropharyngeal pain [Unknown]
  - Alanine aminotransferase increased [Unknown]
  - Pain in extremity [Unknown]
  - Dysphonia [Unknown]
  - Hair growth abnormal [Unknown]
  - Blood testosterone increased [Recovering/Resolving]
  - Hormone level abnormal [Unknown]
  - Malaise [Unknown]
  - Drug ineffective [Unknown]
  - Therapeutic response shortened [Unknown]
  - Product administration error [Unknown]
  - Product dose omission issue [Unknown]

NARRATIVE: CASE EVENT DATE: 20250326
